FAERS Safety Report 8043059-5 (Version None)
Quarter: 2012Q1

REPORT INFORMATION
  Report Type: 
  Country: None (occurrence: None)
  Receive Date: 20120112
  Receipt Date: 20120110
  Transmission Date: 20120608
  Serious: Yes (Death)
  Sender: FDA-Public Use
  Company Number: PHHY2012TH002308

PATIENT
  Sex: Female

DRUGS (2)
  1. GLEEVEC [Suspect]
     Indication: GASTROINTESTINAL STROMAL TUMOUR
     Dosage: 400 MG, UNK
     Dates: start: 20060405
  2. GLEEVEC [Suspect]
     Dosage: 800 MG, UNK
     Dates: start: 20111102

REACTIONS (1)
  - PULMONARY EMBOLISM [None]
